FAERS Safety Report 12170037 (Version 1)
Quarter: 2016Q1

REPORT INFORMATION
  Report Type: Spontaneous
  Country: IT (occurrence: IT)
  Receive Date: 20160310
  Receipt Date: 20160310
  Transmission Date: 20160526
  Serious: Yes (Hospitalization)
  Sender: FDA-Public Use
  Company Number: PHHY2016IT030228

PATIENT
  Age: 60 Year
  Sex: Female

DRUGS (2)
  1. ARTELAC REBALANCE [Concomitant]
     Indication: PRODUCT USED FOR UNKNOWN INDICATION
     Dosage: 2 DRP, TID
     Route: 047
  2. SIMVASTATIN SANDOZ [Suspect]
     Active Substance: SIMVASTATIN
     Indication: DYSLIPIDAEMIA
     Dosage: 10 MG, QD
     Route: 048
     Dates: start: 20150514, end: 20150618

REACTIONS (3)
  - Muscle tightness [Unknown]
  - Tenosynovitis [Unknown]
  - Arthralgia [Unknown]

NARRATIVE: CASE EVENT DATE: 20150615
